FAERS Safety Report 5312679-0 (Version None)
Quarter: 2007Q2

REPORT INFORMATION
  Report Type: 
  Country: None (occurrence: None)
  Receive Date: 20070430
  Receipt Date: 20070126
  Transmission Date: 20071010
  Serious: No
  Sender: FDA-Public Use
  Company Number: 2007UW01680

PATIENT
  Age: 75 Year
  Sex: Female
  Weight: 55.3 kg

DRUGS (3)
  1. NEXIUM [Suspect]
     Indication: GASTROOESOPHAGEAL REFLUX DISEASE
     Route: 048
  2. PREMARIN [Concomitant]
  3. XANAX [Concomitant]

REACTIONS (3)
  - CONSTIPATION [None]
  - MALAISE [None]
  - MICTURITION URGENCY [None]
